FAERS Safety Report 11780946 (Version 1)
Quarter: 2015Q4

REPORT INFORMATION
  Report Type: Report from Study
  Country: US (occurrence: US)
  Receive Date: 20151126
  Receipt Date: 20151126
  Transmission Date: 20160305
  Serious: No
  Sender: FDA-Public Use
  Company Number: PHHY2012US130932

PATIENT
  Sex: Male

DRUGS (9)
  1. LUCENTIS [Suspect]
     Active Substance: RANIBIZUMAB
     Indication: MACULAR FIBROSIS
  2. TROPICAMIDE. [Concomitant]
     Active Substance: TROPICAMIDE
     Indication: PRODUCT USED FOR UNKNOWN INDICATION
     Dosage: 1 %, UNK
     Route: 065
  3. PHENYLEPHRINE [Concomitant]
     Active Substance: PHENYLEPHRINE\PHENYLEPHRINE HYDROCHLORIDE
     Indication: PRODUCT USED FOR UNKNOWN INDICATION
     Dosage: 2.5 %, BOTH EYES (OU)
     Route: 065
  4. AVASTIN [Suspect]
     Active Substance: BEVACIZUMAB
     Indication: MACULAR FIBROSIS
     Dosage: UNK
     Route: 031
  5. LUCENTIS [Suspect]
     Active Substance: RANIBIZUMAB
     Indication: DIABETIC RETINOPATHY
     Dosage: 0.5 MG, 1 IN 1 M
     Route: 031
  6. AVASTIN [Suspect]
     Active Substance: BEVACIZUMAB
     Indication: INTRAOCULAR LENS IMPLANT
  7. LUCENTIS [Suspect]
     Active Substance: RANIBIZUMAB
     Indication: INTRAOCULAR LENS IMPLANT
     Dosage: UNK
     Route: 031
  8. DUREZOL [Suspect]
     Active Substance: DIFLUPREDNATE
     Indication: PRODUCT USED FOR UNKNOWN INDICATION
     Dosage: 1 GTT, EVERY MORNING (BOTH EYES: OU)
     Route: 065
  9. AVASTIN [Suspect]
     Active Substance: BEVACIZUMAB
     Indication: DIABETIC RETINOPATHY

REACTIONS (8)
  - Off label use [Unknown]
  - Extra dose administered [Unknown]
  - Blood glucose increased [Unknown]
  - Vision blurred [Unknown]
  - Visual impairment [Unknown]
  - Drug ineffective [Unknown]
  - Photopsia [Unknown]
  - Ocular hypertension [Recovered/Resolved]
